FAERS Safety Report 9753728 (Version 2)
Quarter: 2013Q4

REPORT INFORMATION
  Report Type: Spontaneous
  Country: US (occurrence: US)
  Receive Date: 20131213
  Receipt Date: 20131213
  Transmission Date: 20140711
  Serious: No
  Sender: FDA-Public Use
  Company Number: US-GILEAD-2010-0026521

PATIENT
  Sex: Female
  Weight: 87.54 kg

DRUGS (24)
  1. LETAIRIS [Suspect]
     Indication: PULMONARY ARTERIAL HYPERTENSION
     Route: 048
     Dates: start: 20091231
  2. HUMALOG [Concomitant]
  3. KLONOPIN [Concomitant]
  4. DOXEPIN [Concomitant]
  5. DILTIAZEM [Concomitant]
  6. SPIRONOLACTONE [Concomitant]
  7. REQUIP [Concomitant]
  8. SYNTHROID [Concomitant]
  9. COUMADIN [Concomitant]
  10. TIKOSYN [Concomitant]
  11. LIPITOR [Concomitant]
  12. CARAFATE [Concomitant]
  13. TOPIRAMATE [Concomitant]
  14. LISINOPRIL [Concomitant]
  15. VICODIN [Concomitant]
  16. LEXAPRO [Concomitant]
  17. MIRALAX [Concomitant]
  18. LUNESTA [Concomitant]
  19. PROTONIX [Concomitant]
  20. VITAMIN D [Concomitant]
  21. POTASSIUM CHLORIDE [Concomitant]
  22. HYDROCODONE [Concomitant]
  23. LANTUS [Concomitant]
  24. CARBIDOPA-LEVO [Concomitant]

REACTIONS (2)
  - Nasal congestion [Unknown]
  - Sinusitis [Unknown]
